FAERS Safety Report 24789540 (Version 2)
Quarter: 2025Q1

REPORT INFORMATION
  Report Type: Report from Study
  Country: JP (occurrence: JP)
  Receive Date: 20241230
  Receipt Date: 20250106
  Transmission Date: 20250409
  Serious: Yes (Hospitalization, Other)
  Sender: JOHNSON AND JOHNSON
  Company Number: JP-JNJFOC-20241215767

PATIENT
  Age: 78 Year
  Sex: Male

DRUGS (1)
  1. ERLEADA [Suspect]
     Active Substance: APALUTAMIDE
     Indication: Prostate cancer metastatic
     Route: 048
     Dates: start: 20241030, end: 20241217

REACTIONS (6)
  - Liver abscess [Recovered/Resolved]
  - Cholangitis [Unknown]
  - Intestinal obstruction [Not Recovered/Not Resolved]
  - Listless [Not Recovered/Not Resolved]
  - Postoperative ileus [Unknown]
  - Hypotension [Not Recovered/Not Resolved]

NARRATIVE: CASE EVENT DATE: 20240101
